FAERS Safety Report 15404470 (Version 2)
Quarter: 2018Q4

REPORT INFORMATION
  Report Type: Report from Study
  Country: US (occurrence: US)
  Receive Date: 20180919
  Receipt Date: 20181003
  Transmission Date: 20190204
  Serious: Yes (Hospitalization, Other)
  Sender: FDA-Public Use
  Company Number: US-SHIRE-US201835484

PATIENT
  Age: 35 Year
  Sex: Female

DRUGS (2)
  1. GATTEX [Suspect]
     Active Substance: TEDUGLUTIDE\WATER
     Indication: SHORT-BOWEL SYNDROME
     Dosage: 1.3 MG, 1X/DAY:QD
     Route: 058
     Dates: start: 20180508, end: 20180919
  2. KLONOPIN [Concomitant]
     Active Substance: CLONAZEPAM
     Indication: PRODUCT USED FOR UNKNOWN INDICATION
     Route: 065

REACTIONS (6)
  - Weight increased [Unknown]
  - Overdose [Unknown]
  - Sepsis [Unknown]
  - Contusion [Unknown]
  - Hypotension [Unknown]
  - Headache [Unknown]

NARRATIVE: CASE EVENT DATE: 20180828
